FAERS Safety Report 9995625 (Version 1)
Quarter: 2014Q1

REPORT INFORMATION
  Report Type: Spontaneous
  Country: US (occurrence: None)
  Receive Date: 20140307
  Receipt Date: 20140307
  Transmission Date: 20141002
  Serious: Yes (Death)
  Sender: FDA-Public Use
  Company Number: None

PATIENT
  Age: 67 Year
  Sex: Female

DRUGS (2)
  1. TEMODAR 140 MG SCHERING-PLOUGH CORP [Suspect]
     Indication: BRAIN NEOPLASM MALIGNANT
     Dosage: 280MG  DAILY X 5  ORAL
     Route: 048
     Dates: start: 20131217, end: 20140205
  2. COUMADIN [Concomitant]

REACTIONS (1)
  - Brain neoplasm malignant [None]
